FAERS Safety Report 8879163 (Version 1)
Quarter: 2012Q4

REPORT INFORMATION
  Report Type: Spontaneous
  Country: US (occurrence: None)
  Receive Date: 20121031
  Receipt Date: 20121031
  Transmission Date: 20130627
  Serious: Yes (Other)
  Sender: FDA-Public Use
  Company Number: None

PATIENT
  Age: 49 Year
  Sex: Female
  Weight: 122.47 kg

DRUGS (2)
  1. QUETIAPINE FUMARATE [Suspect]
     Indication: BIPOLAR DISORDER
     Route: 048
     Dates: start: 20120814, end: 20121025
  2. QUETIAPINE FUMARATE [Suspect]
     Indication: DEPRESSION
     Route: 048
     Dates: start: 20120814, end: 20121025

REACTIONS (7)
  - Product substitution issue [None]
  - Product quality issue [None]
  - Overdose [None]
  - Thinking abnormal [None]
  - Fear [None]
  - Metabolic disorder [None]
  - Drug intolerance [None]
